FAERS Safety Report 7132104-7 (Version None)
Quarter: 2010Q4

REPORT INFORMATION
  Report Type: 
  Country: None (occurrence: None)
  Receive Date: 20101129
  Receipt Date: 20101129
  Transmission Date: 20110411
  Serious: Yes (Other)
  Sender: FDA-Public Use
  Company Number: None

PATIENT
  Age: 57 Year
  Sex: Female
  Weight: 62.1428 kg

DRUGS (1)
  1. NITROFURANTOIN [Suspect]
     Indication: KIDNEY INFECTION
     Dosage: 100MG 1 CAPSULE - TWICE DAILY
     Dates: start: 20101019, end: 20101021

REACTIONS (4)
  - ARTHRALGIA [None]
  - DYSPNOEA [None]
  - MALAISE [None]
  - MYALGIA [None]
